FAERS Safety Report 14120168 (Version 1)
Quarter: 2017Q4

REPORT INFORMATION
  Report Type: Report from Study
  Country: US (occurrence: US)
  Receive Date: 20171024
  Receipt Date: 20171024
  Transmission Date: 20180321
  Serious: Yes (Other)
  Sender: FDA-Public Use
  Company Number: US-B.I. PHARMACEUTICALS,INC./RIDGEFIELD-2017-BI-057113

PATIENT

DRUGS (3)
  1. PERSANTIN [Suspect]
     Active Substance: DIPYRIDAMOLE
     Indication: THROMBOSIS IN DEVICE
     Route: 065
  2. ASA [Concomitant]
     Active Substance: ASPIRIN
     Indication: PRODUCT USED FOR UNKNOWN INDICATION
     Route: 065
  3. ACTILYSE [Suspect]
     Active Substance: ALTEPLASE
     Indication: THROMBOSIS IN DEVICE
     Dosage: INITIAL 3MG BOLUS FOLLOWED BY INFUSION OF 18 MG OVER 6 HOURS
     Route: 065

REACTIONS (1)
  - Embolism [Unknown]
